FAERS Safety Report 9537865 (Version 1)
Quarter: 2013Q3

REPORT INFORMATION
  Report Type: Spontaneous
  Country: PT (occurrence: PT)
  Receive Date: 20130919
  Receipt Date: 20130919
  Transmission Date: 20140515
  Serious: Yes (Death, Other)
  Sender: FDA-Public Use
  Company Number: PT-CELGENEUS-130-50794-13033513

PATIENT
  Age: 75 Year
  Sex: Female

DRUGS (1)
  1. VIDAZA [Suspect]
     Indication: ACUTE MYELOID LEUKAEMIA
     Route: 065
     Dates: start: 201102

REACTIONS (5)
  - Death [Fatal]
  - General physical health deterioration [Unknown]
  - Acute myeloid leukaemia [Unknown]
  - Fatigue [Unknown]
  - Acute myeloid leukaemia [Unknown]
